FAERS Safety Report 5379847-3 (Version None)
Quarter: 2007Q3

REPORT INFORMATION
  Report Type: 
  Country: None (occurrence: None)
  Receive Date: 20070703
  Receipt Date: 20070626
  Transmission Date: 20080115
  Serious: Yes (Other)
  Sender: FDA-Public Use
  Company Number: 2007JP003002

PATIENT
  Age: 53 Year
  Sex: Female

DRUGS (2)
  1. PROGRAF [Suspect]
     Indication: CORD BLOOD TRANSPLANT THERAPY
  2. ACICLOVIR (ACICLOVIR) FORMULATION UNKNOWN [Concomitant]

REACTIONS (3)
  - ENCEPHALITIS HERPES [None]
  - HISTIOCYTOSIS HAEMATOPHAGIC [None]
  - PULMONARY HAEMORRHAGE [None]
